FAERS Safety Report 6330193-0 (Version None)
Quarter: 2009Q3

REPORT INFORMATION
  Report Type: 
  Country: None (occurrence: None)
  Receive Date: 20090827
  Receipt Date: 20090824
  Transmission Date: 20100115
  Serious: Yes (Other)
  Sender: FDA-Public Use
  Company Number: US-TEVA-206917USA

PATIENT
  Age: 16 Year
  Sex: Female
  Weight: 57.204 kg

DRUGS (1)
  1. PLAN B [Suspect]
     Indication: POST COITAL CONTRACEPTION
     Route: 048
     Dates: start: 20090819, end: 20090819

REACTIONS (5)
  - HAEMATEMESIS [None]
  - MENSTRUAL DISORDER [None]
  - MENSTRUATION IRREGULAR [None]
  - NAUSEA [None]
  - VOMITING [None]
